FAERS Safety Report 7261308-8 (Version None)
Quarter: 2011Q1

REPORT INFORMATION
  Report Type: 
  Country: None (occurrence: None)
  Receive Date: 20110130
  Receipt Date: 20100929
  Transmission Date: 20110831
  Serious: Yes (Other)
  Sender: FDA-Public Use
  Company Number: US-ABBOTT-10P-163-0674747-00

PATIENT
  Sex: Female
  Weight: 61.29 kg

DRUGS (1)
  1. HUMIRA [Suspect]
     Indication: CROHN'S DISEASE
     Route: 058
     Dates: start: 20090101, end: 20100928

REACTIONS (4)
  - PROCEDURAL PAIN [None]
  - BREAST CANCER IN SITU [None]
  - NIPPLE EXUDATE BLOODY [None]
  - NIPPLE ULCERATION [None]
